FAERS Safety Report 4582793-6 (Version None)
Quarter: 2005Q1

REPORT INFORMATION
  Report Type: 
  Country: None (occurrence: None)
  Receive Date: 20050215
  Receipt Date: 20050202
  Transmission Date: 20050727
  Serious: Yes (Other)
  Sender: FDA-Public Use
  Company Number: IT-GLAXOSMITHKLINE-B0369780A

PATIENT

DRUGS (1)
  1. MELPHALAN [Suspect]
     Indication: METASTASES TO LIVER
     Route: 042

REACTIONS (1)
  - RENAL FAILURE [None]
